FAERS Safety Report 10209365 (Version 1)
Quarter: 2014Q2

REPORT INFORMATION
  Report Type: Other
  Country: TR (occurrence: TR)
  Receive Date: 20140531
  Receipt Date: 20140531
  Transmission Date: 20141212
  Serious: Yes (Hospitalization)
  Sender: FDA-Public Use
  Company Number: TR-LUPIN PHARMACEUTICALS INC.-2013-01642

PATIENT
  Age: 24 Year
  Sex: Male

DRUGS (1)
  1. CEFTRIAXONE [Suspect]
     Indication: LOWER RESPIRATORY TRACT INFECTION
     Route: 030

REACTIONS (2)
  - Acute coronary syndrome [Recovered/Resolved]
  - Hypersensitivity [Recovered/Resolved]
